FAERS Safety Report 9553300 (Version 4)
Quarter: 2014Q1

REPORT INFORMATION
  Report Type: Report from Study
  Country: US (occurrence: US)
  Receive Date: 20130925
  Receipt Date: 20140304
  Transmission Date: 20141002
  Serious: Yes (Death, Hospitalization)
  Sender: FDA-Public Use
  Company Number: US-SANOFI-AVENTIS-2013SA093074

PATIENT
  Age: 60 Year
  Sex: Female
  Weight: 50 kg

DRUGS (9)
  1. AUBAGIO [Suspect]
     Indication: MULTIPLE SCLEROSIS
     Route: 048
     Dates: start: 20130603, end: 201307
  2. ACETAMINOPHEN [Concomitant]
     Indication: PAIN
     Dosage: 325 MG BID - QID PRN.
     Route: 048
     Dates: start: 2013, end: 2013
  3. ASPIRIN [Concomitant]
     Indication: CEREBROVASCULAR ACCIDENT PROPHYLAXIS
     Route: 048
     Dates: start: 2013, end: 2013
  4. FERROUS SULFATE [Concomitant]
     Indication: MINERAL SUPPLEMENTATION
     Route: 048
     Dates: start: 2013, end: 2013
  5. FLUOXETINE [Concomitant]
     Indication: DEPRESSION
     Route: 048
     Dates: start: 2013, end: 2013
  6. FLUOXETINE [Concomitant]
     Indication: ANXIETY
     Route: 048
     Dates: start: 2013, end: 2013
  7. LITHIUM CARBONATE [Concomitant]
     Indication: AFFECTIVE DISORDER
     Route: 048
     Dates: start: 2013, end: 2013
  8. REMERON [Concomitant]
     Indication: AFFECTIVE DISORDER
     Route: 048
     Dates: start: 2013, end: 2013
  9. TRAZODONE [Concomitant]
     Indication: INSOMNIA
     Route: 048
     Dates: start: 2013, end: 2013

REACTIONS (2)
  - Death [Fatal]
  - Pyrexia [Unknown]
